FAERS Safety Report 4632399-5 (Version None)
Quarter: 2005Q2

REPORT INFORMATION
  Report Type: 
  Country: None (occurrence: None)
  Receive Date: 20050411
  Receipt Date: 20040915
  Transmission Date: 20051028
  Serious: Yes (Hospitalization)
  Sender: FDA-Public Use
  Company Number: JP-BRISTOL-MYERS SQUIBB COMPANY-12703393

PATIENT
  Age: 64 Year
  Sex: Male

DRUGS (8)
  1. TAXOL [Suspect]
     Indication: LUNG NEOPLASM MALIGNANT
     Dosage: THERAPY DATES: 23-JUN TO 01-SEP-2004
     Route: 042
     Dates: start: 20040623, end: 20040623
  2. PARAPLATIN [Suspect]
     Indication: LUNG NEOPLASM MALIGNANT
     Dosage: THERAPY DATES: 23-JUN TO 01-SEP-2004
     Route: 042
     Dates: start: 20040623, end: 20040623
  3. RADIOTHERAPY [Concomitant]
     Dates: start: 20040628, end: 20040728
  4. CLARITHROMYCIN [Concomitant]
  5. SERRAPEPTASE [Concomitant]
  6. L-CARBOCISTEINE [Concomitant]
  7. TULOBUTEROL HCL [Concomitant]
  8. EBASTINE [Concomitant]

REACTIONS (4)
  - C-REACTIVE PROTEIN INCREASED [None]
  - INTERSTITIAL LUNG DISEASE [None]
  - PSEUDOMONAS INFECTION [None]
  - RASH [None]
